FAERS Safety Report 8429550-8 (Version None)
Quarter: 2012Q2

REPORT INFORMATION
  Report Type: 
  Country: None (occurrence: None)
  Receive Date: 20120604
  Receipt Date: 20120521
  Transmission Date: 20120825
  Serious: Yes (Hospitalization, Other)
  Sender: FDA-Public Use
  Company Number: 2012P1030673

PATIENT
  Age: 18 Year
  Sex: Female
  Weight: 47 kg

DRUGS (4)
  1. METHIMAZOLE [Suspect]
     Indication: BASEDOW'S DISEASE
     Dosage: 20 MG;QD; 10 MG;X1; 10 MG;XI; 10 MG;BID;
     Dates: start: 20090101
  2. METHIMAZOLE [Suspect]
     Indication: BASEDOW'S DISEASE
     Dosage: 20 MG;QD; 10 MG;X1; 10 MG;XI; 10 MG;BID;
     Dates: start: 20110221
  3. METHIMAZOLE [Suspect]
     Indication: BASEDOW'S DISEASE
     Dosage: 20 MG;QD; 10 MG;X1; 10 MG;XI; 10 MG;BID;
     Dates: start: 20110302
  4. METHIMAZOLE [Suspect]
     Indication: BASEDOW'S DISEASE
     Dosage: 20 MG;QD; 10 MG;X1; 10 MG;XI; 10 MG;BID;
     Dates: start: 20110517

REACTIONS (1)
  - PANCREATITIS ACUTE [None]
